FAERS Safety Report 11814296 (Version 1)
Quarter: 2015Q4

REPORT INFORMATION
  Report Type: Spontaneous
  Country: GB (occurrence: GB)
  Receive Date: 20151209
  Receipt Date: 20151209
  Transmission Date: 20160305
  Serious: Yes (Other)
  Sender: FDA-Public Use
  Company Number: GB-BAYER-2015-483429

PATIENT
  Sex: Female

DRUGS (1)
  1. GADOVIST 1.0 MMOL/ML SOLUTION FOR INJECTION [Suspect]
     Active Substance: GADOBUTROL
     Indication: NUCLEAR MAGNETIC RESONANCE IMAGING
     Dosage: 10 ML, ONCE
     Dates: start: 20151105, end: 20151105

REACTIONS (5)
  - Urticaria [Recovered/Resolved]
  - Headache [Recovered/Resolved]
  - Confusional state [Recovered/Resolved]
  - Dyspnoea [Recovered/Resolved]
  - Chest pain [Recovered/Resolved]

NARRATIVE: CASE EVENT DATE: 20151105
